FAERS Safety Report 14361293 (Version 2)
Quarter: 2018Q1

REPORT INFORMATION
  Report Type: Report from Study
  Country: MX (occurrence: MX)
  Receive Date: 20180108
  Receipt Date: 20180124
  Transmission Date: 20180509
  Serious: Yes (Hospitalization)
  Sender: FDA-Public Use
  Company Number: PHHY2018MX000879

PATIENT
  Age: 79 Year
  Sex: Female
  Weight: 48 kg

DRUGS (6)
  1. OMEPRAZOLE. [Concomitant]
     Active Substance: OMEPRAZOLE
     Indication: GASTRIC DISORDER
     Dosage: 1 DF, Q12H
     Route: 048
  2. BACTRIM [Concomitant]
     Active Substance: SULFAMETHOXAZOLE\TRIMETHOPRIM
     Indication: GASTRIC DISORDER
     Dosage: 1 DF, Q12H (EVERY 12 HOURS DURING 4 DAYS EVERY MONTH)
     Route: 048
  3. METFORMIN [Suspect]
     Active Substance: METFORMIN HYDROCHLORIDE
     Indication: DIABETES MELLITUS
     Dosage: 2 DF, BID (ONE TABLET IN THE MORNING AND ONE IN THE NIGHT)
     Route: 048
     Dates: end: 201801
  4. GALVUS MET [Suspect]
     Active Substance: METFORMIN HYDROCHLORIDE\VILDAGLIPTIN
     Indication: DIABETES MELLITUS
     Dosage: 2 DF(500 MG METFORMIN AND 50 MG VILDAGLIPTIN), QD
     Route: 048
     Dates: start: 201801
  5. BICARTIAL [Concomitant]
     Indication: HYPERTENSION
     Dosage: 1 DF, UNK (DURING THE DAY)
     Route: 048
  6. BEZAFIBRATE [Concomitant]
     Active Substance: BEZAFIBRATE
     Indication: BLOOD CHOLESTEROL ABNORMAL
     Dosage: 1 DF, QHS (MANY YEARS AGO)
     Route: 048

REACTIONS (1)
  - Diarrhoea [Recovered/Resolved]

NARRATIVE: CASE EVENT DATE: 201801
